FAERS Safety Report 9987089 (Version 1)
Quarter: 2014Q1

REPORT INFORMATION
  Report Type: Report from Study
  Country: US (occurrence: US)
  Receive Date: 20140307
  Receipt Date: 20140307
  Transmission Date: 20141002
  Serious: No
  Sender: FDA-Public Use
  Company Number: US-ABBVIE-13P-163-1081686-00

PATIENT
  Age: 47 Year
  Sex: Male
  Weight: 92.62 kg

DRUGS (6)
  1. HUMIRA [Suspect]
     Indication: CROHN^S DISEASE
     Route: 058
     Dates: start: 20120920, end: 20120920
  2. HUMIRA [Suspect]
     Route: 058
     Dates: start: 20121004, end: 20121004
  3. HUMIRA [Suspect]
     Route: 058
     Dates: start: 20121018
  4. MERCAPTOPURINE [Concomitant]
     Indication: CROHN^S DISEASE
  5. VITAMIN B12 [Concomitant]
     Indication: CROHN^S DISEASE
  6. IRON [Concomitant]
     Indication: ANAEMIA

REACTIONS (3)
  - Rhinorrhoea [Not Recovered/Not Resolved]
  - Cough [Not Recovered/Not Resolved]
  - Nasopharyngitis [Not Recovered/Not Resolved]
